FAERS Safety Report 15608349 (Version 1)
Quarter: 2018Q4

REPORT INFORMATION
  Report Type: Spontaneous
  Country: US (occurrence: US)
  Receive Date: 20181112
  Receipt Date: 20181112
  Transmission Date: 20190205
  Serious: Yes (Life-Threatening)
  Sender: FDA-Public Use
  Company Number: None

PATIENT
  Age: 73 Year
  Sex: Male
  Weight: 86.85 kg

DRUGS (2)
  1. METOPROLOL SUCC ER 25 MG TAB, UU, 25 MG [Suspect]
     Active Substance: METOPROLOL SUCCINATE
     Indication: HYPERTENSION
     Dosage: QUANTITY:1 TABLET(S); AT BEDTIME?
     Route: 048
     Dates: start: 20181009, end: 20181011
  2. MULTI VITAMIN [Concomitant]
     Active Substance: VITAMINS

REACTIONS (10)
  - Fatigue [None]
  - Fall [None]
  - Blood pressure increased [None]
  - Muscular weakness [None]
  - Dysarthria [None]
  - Rhinorrhoea [None]
  - Anxiety [None]
  - Motor dysfunction [None]
  - Dizziness [None]
  - Dysstasia [None]

NARRATIVE: CASE EVENT DATE: 20181012
